FAERS Safety Report 6155796-8 (Version None)
Quarter: 2009Q2

REPORT INFORMATION
  Report Type: 
  Country: None (occurrence: None)
  Receive Date: 20090415
  Receipt Date: 20090407
  Transmission Date: 20091009
  Serious: Yes (Other)
  Sender: FDA-Public Use
  Company Number: PHHY2009FR06000

PATIENT
  Sex: Male

DRUGS (5)
  1. TASIGNA [Suspect]
     Indication: CHRONIC MYELOID LEUKAEMIA
     Dosage: 400 MG, BID
     Dates: start: 20060701
  2. PERINDOPRIL ERBUMINE [Concomitant]
  3. PRAVADUAL [Concomitant]
  4. DIFFU K [Concomitant]
     Dosage: UNK
     Dates: start: 20020101
  5. ACEBUTOLOL [Concomitant]
     Dosage: 100 MG, BID
     Dates: start: 20000101

REACTIONS (2)
  - MACULAR OEDEMA [None]
  - VISUAL ACUITY REDUCED [None]
